FAERS Safety Report 10088914 (Version 1)
Quarter: 2014Q2

REPORT INFORMATION
  Report Type: Spontaneous
  Country: DK (occurrence: DK)
  Receive Date: 20140421
  Receipt Date: 20140421
  Transmission Date: 20141212
  Serious: Yes (Hospitalization)
  Sender: FDA-Public Use
  Company Number: DK-JNJFOC-20140411507

PATIENT
  Age: 84 Year
  Sex: Female

DRUGS (19)
  1. XARELTO [Suspect]
     Indication: PULMONARY EMBOLISM
     Route: 048
     Dates: start: 20140225, end: 20140305
  2. XARELTO [Suspect]
     Indication: DEEP VEIN THROMBOSIS
     Route: 048
     Dates: start: 20140225, end: 20140305
  3. CODEINE PHOSPHATE [Concomitant]
     Route: 065
  4. DUOVENT [Concomitant]
     Route: 065
  5. HJERTEMAGNYL [Concomitant]
     Route: 065
  6. IMOCLONE [Concomitant]
     Route: 065
  7. KALEORID [Concomitant]
     Route: 065
  8. KININ [Concomitant]
     Route: 065
  9. LUMIGAN [Concomitant]
     Route: 065
  10. OXIS [Concomitant]
     Route: 065
  11. PREDNISOLON [Concomitant]
     Route: 065
  12. PANTOPRAZOLE SODIUM [Concomitant]
     Route: 065
  13. SPIRIVA [Concomitant]
     Route: 065
  14. TAZOCIN [Concomitant]
     Route: 065
  15. INNOHEP [Concomitant]
     Route: 065
  16. MAGNYL [Concomitant]
     Route: 065
  17. DIURAL (FUROSEMIDE) [Concomitant]
     Route: 065
  18. BRILIQUE [Concomitant]
     Route: 065
  19. ALENDRONATE SODIUM [Concomitant]
     Route: 065

REACTIONS (4)
  - Haematemesis [Recovered/Resolved]
  - Epistaxis [Recovered/Resolved]
  - Pulse abnormal [Recovered/Resolved]
  - Blood pressure abnormal [Recovered/Resolved]
